FAERS Safety Report 13882786 (Version 2)
Quarter: 2017Q4

REPORT INFORMATION
  Report Type: Report from Study
  Country: US (occurrence: US)
  Receive Date: 20170818
  Receipt Date: 20171002
  Transmission Date: 20180320
  Serious: Yes (Hospitalization, Other)
  Sender: FDA-Public Use
  Company Number: US-ALEXION PHARMACEUTICALS INC.-A201709023

PATIENT
  Sex: Male

DRUGS (1)
  1. SOLIRIS [Suspect]
     Active Substance: ECULIZUMAB
     Indication: PRODUCT USED FOR UNKNOWN INDICATION
     Route: 042

REACTIONS (8)
  - Fatigue [Unknown]
  - Ascites [Unknown]
  - Hepatic cirrhosis [Unknown]
  - Decreased appetite [Recovering/Resolving]
  - Blood creatinine increased [Unknown]
  - Haptoglobin abnormal [Unknown]
  - Cytomegalovirus test positive [Unknown]
  - Wound secretion [Unknown]
